FAERS Safety Report 4294771-5 (Version None)
Quarter: 2004Q1

REPORT INFORMATION
  Report Type: 
  Country: None (occurrence: None)
  Receive Date: 20040213
  Receipt Date: 20040204
  Transmission Date: 20041129
  Serious: Yes (Hospitalization)
  Sender: FDA-Public Use
  Company Number: WAES 0402USA00505B1

PATIENT
  Sex: Female
  Weight: 2 kg

DRUGS (1)
  1. INDOCIN [Suspect]
     Indication: POLYHYDRAMNIOS

REACTIONS (5)
  - DUCTUS ARTERIOSUS PREMATURE CLOSURE [None]
  - FOETAL GROWTH RETARDATION [None]
  - MATERNAL DRUGS AFFECTING FOETUS [None]
  - PREMATURE BABY [None]
  - TRICUSPID VALVE INCOMPETENCE [None]
